FAERS Safety Report 19427855 (Version 1)
Quarter: 2021Q2

REPORT INFORMATION
  Report Type: Other
  Country: US (occurrence: US)
  Receive Date: 20210616
  Receipt Date: 20210616
  Transmission Date: 20210717
  Serious: No
  Sender: FDA-Public Use
  Company Number: US-ROCHE-2646937

PATIENT
  Age: 70 Year
  Sex: Male

DRUGS (15)
  1. HEPARIN [Concomitant]
     Active Substance: HEPARIN SODIUM
     Indication: PROPHYLAXIS
     Dosage: 5000 UNITS
     Route: 058
  2. HYDROXYCHLOROQUINE [Concomitant]
     Active Substance: HYDROXYCHLOROQUINE
     Indication: ACUTE RESPIRATORY DISTRESS SYNDROME
  3. HYDROXYCHLOROQUINE [Concomitant]
     Active Substance: HYDROXYCHLOROQUINE
     Indication: COVID-19
  4. REMDESIVIR. [Concomitant]
     Active Substance: REMDESIVIR
     Indication: ACUTE RESPIRATORY DISTRESS SYNDROME
  5. VASOPRESSIN. [Concomitant]
     Active Substance: VASOPRESSIN
  6. TOCILIZUMAB. [Suspect]
     Active Substance: TOCILIZUMAB
     Indication: ACUTE RESPIRATORY DISTRESS SYNDROME
  7. CEFTRIAXONE. [Concomitant]
     Active Substance: CEFTRIAXONE
  8. HEPARIN [Concomitant]
     Active Substance: HEPARIN SODIUM
     Indication: ACUTE RESPIRATORY DISTRESS SYNDROME
     Dosage: 18 UNITS/KG/H
  9. REMDESIVIR. [Concomitant]
     Active Substance: REMDESIVIR
     Indication: COVID-19
  10. NOREPINEPHRINE. [Concomitant]
     Active Substance: NOREPINEPHRINE
  11. CISATRACURIUM. [Concomitant]
     Active Substance: CISATRACURIUM
     Indication: ACUTE RESPIRATORY DISTRESS SYNDROME
  12. BIVALIRUDIN. [Concomitant]
     Active Substance: BIVALIRUDIN
     Indication: PROPHYLAXIS
  13. TOCILIZUMAB. [Suspect]
     Active Substance: TOCILIZUMAB
     Indication: COVID-19
     Route: 065
  14. TENECTEPLASE [Concomitant]
     Active Substance: TENECTEPLASE
  15. AZITHROMYCIN ANHYDROUS. [Concomitant]
     Active Substance: AZITHROMYCIN ANHYDROUS

REACTIONS (3)
  - Off label use [Unknown]
  - Intentional product use issue [Unknown]
  - No adverse event [Unknown]
